FAERS Safety Report 4554951-8 (Version None)
Quarter: 2004Q4

REPORT INFORMATION
  Report Type: 
  Country: None (occurrence: None)
  Receive Date: 20041222
  Receipt Date: 20041104
  Transmission Date: 20050328
  Serious: Yes (Hospitalization)
  Sender: FDA-Public Use
  Company Number: 210225

PATIENT
  Age: 52 Year
  Sex: Male
  Weight: 107.9 kg

DRUGS (7)
  1. AVASTIN [Suspect]
     Indication: COLORECTAL CANCER METASTATIC
     Dosage: 500 MG, Q2W, INTRAVENOUS
     Route: 042
     Dates: start: 20040405, end: 20040830
  2. RITALIN [Concomitant]
  3. LEXAPRO [Concomitant]
  4. NEXIUM [Concomitant]
  5. COUMADIN [Concomitant]
  6. NEURONTIN [Concomitant]
  7. CELEBREX [Concomitant]

REACTIONS (1)
  - HYPERTENSION [None]
